FAERS Safety Report 5112645-4 (Version None)
Quarter: 2006Q3

REPORT INFORMATION
  Report Type: 
  Country: None (occurrence: None)
  Receive Date: 20060918
  Receipt Date: 20060918
  Transmission Date: 20061208
  Serious: No
  Sender: FDA-Public Use
  Company Number: None

PATIENT
  Age: 72 Year
  Sex: Male

DRUGS (3)
  1. AUGMENTIN [Suspect]
     Dosage: SEE IMAGE
     Dates: start: 20050128, end: 20050212
  2. LISINOPRIL [Concomitant]
  3. ZANTAC [Concomitant]

REACTIONS (7)
  - BACTERIAL INFECTION [None]
  - DYSPEPSIA [None]
  - HEPATIC TRAUMA [None]
  - HEPATITIS ACUTE [None]
  - HEPATOTOXICITY [None]
  - PROSTATITIS [None]
  - PYREXIA [None]
